FAERS Safety Report 18771433 (Version 1)
Quarter: 2021Q1

REPORT INFORMATION
  Report Type: Spontaneous
  Country: US (occurrence: US)
  Receive Date: 20210121
  Receipt Date: 20210121
  Transmission Date: 20210419
  Serious: No
  Sender: FDA-Public Use
  Company Number: US-PERRIGO-20US004563

PATIENT
  Sex: Female
  Weight: 59.86 kg

DRUGS (1)
  1. IBUPROFEN. [Suspect]
     Active Substance: IBUPROFEN
     Indication: ARTHRALGIA
     Dosage: 600 MG TO 800 MG, QD, PRN
     Route: 048

REACTIONS (1)
  - Incorrect dose administered [Not Recovered/Not Resolved]
